FAERS Safety Report 14750370 (Version 2)
Quarter: 2018Q2

REPORT INFORMATION
  Report Type: Spontaneous
  Country: BR (occurrence: BR)
  Receive Date: 20180412
  Receipt Date: 20180430
  Transmission Date: 20180711
  Serious: Yes (Death, Hospitalization, Other)
  Sender: FDA-Public Use
  Company Number: BR-B.I. PHARMACEUTICALS,INC./RIDGEFIELD-2018-BI-019853

PATIENT
  Age: 72 Year
  Sex: Male

DRUGS (2)
  1. OFEV [Suspect]
     Active Substance: NINTEDANIB
     Route: 065
  2. OFEV [Suspect]
     Active Substance: NINTEDANIB
     Indication: IDIOPATHIC PULMONARY FIBROSIS
     Route: 065
     Dates: start: 201608

REACTIONS (16)
  - Respiratory failure [Fatal]
  - Pain in extremity [Not Recovered/Not Resolved]
  - Chills [Unknown]
  - Pyrexia [Unknown]
  - Muscular weakness [Not Recovered/Not Resolved]
  - Polymyositis [Unknown]
  - Urinary incontinence [Unknown]
  - Constipation [Unknown]
  - Neck pain [Not Recovered/Not Resolved]
  - Gait disturbance [Not Recovered/Not Resolved]
  - Diffuse alveolar damage [Fatal]
  - Fatigue [Not Recovered/Not Resolved]
  - Muscular weakness [Not Recovered/Not Resolved]
  - Fatigue [Recovered/Resolved]
  - Idiopathic pulmonary fibrosis [Fatal]
  - Weight decreased [Unknown]

NARRATIVE: CASE EVENT DATE: 201705
